FAERS Safety Report 17650940 (Version 2)
Quarter: 2020Q2

REPORT INFORMATION
  Report Type: Spontaneous
  Country: US (occurrence: US)
  Receive Date: 20200409
  Receipt Date: 20200416
  Transmission Date: 20200713
  Serious: Yes (Other)
  Sender: FDA-Public Use
  Company Number: US-SUNOVION-2020SUN001130

PATIENT
  Age: 19 Year
  Sex: Female

DRUGS (1)
  1. LATUDA [Suspect]
     Active Substance: LURASIDONE HYDROCHLORIDE
     Dosage: 20 MG
     Route: 048

REACTIONS (9)
  - Psychotic disorder [Unknown]
  - Anxiety [Unknown]
  - Anger [Unknown]
  - Abdominal pain upper [Unknown]
  - Restlessness [Unknown]
  - Withdrawal syndrome [Unknown]
  - Urinary retention [Unknown]
  - Delusion [Unknown]
  - Bipolar disorder [Unknown]
